FAERS Safety Report 15261994 (Version 2)
Quarter: 2018Q3

REPORT INFORMATION
  Report Type: Spontaneous
  Country: CR (occurrence: CR)
  Receive Date: 20180809
  Receipt Date: 20180814
  Transmission Date: 20181010
  Serious: Yes (Death, Hospitalization)
  Sender: FDA-Public Use
  Company Number: CR-PFIZER INC-2018318565

PATIENT
  Age: 22 Year
  Sex: Female

DRUGS (1)
  1. DILANTIN [Suspect]
     Active Substance: PHENYTOIN
     Indication: SEIZURE
     Dosage: 10000 MG, SINGLE

REACTIONS (7)
  - Poisoning [Fatal]
  - Disorientation [Unknown]
  - Pyrexia [Unknown]
  - Amnesia [Unknown]
  - Seizure [Unknown]
  - Overdose [Fatal]
  - Aphasia [Unknown]
